FAERS Safety Report 4369753-5 (Version None)
Quarter: 2004Q2

REPORT INFORMATION
  Report Type: 
  Country: None (occurrence: None)
  Receive Date: 20040528
  Receipt Date: 20040518
  Transmission Date: 20050107
  Serious: Yes (Death, Hospitalization)
  Sender: FDA-Public Use
  Company Number: US-AMGEN-KDL067587

PATIENT
  Age: 71 Year
  Sex: Female

DRUGS (13)
  1. PROCRIT [Suspect]
     Indication: RENAL FAILURE CHRONIC
     Dates: start: 20040118
  2. ALBUTEROL [Concomitant]
  3. IPRATROPIUM BROMIDE [Concomitant]
  4. FUROSEMIDE [Concomitant]
  5. AMLODIPINE BESYLATE [Concomitant]
  6. PANTOPRAZOLE SODIUM [Concomitant]
  7. SULTOPRIDE [Concomitant]
  8. ATORVASTATIN CALCIUM [Concomitant]
  9. BUPROPION HCL [Concomitant]
  10. BENAZEPRIL HCL [Concomitant]
  11. METOLAZONE [Concomitant]
  12. CALCITRIOL [Concomitant]
  13. IRON [Concomitant]

REACTIONS (7)
  - ABDOMINAL PAIN [None]
  - DEHYDRATION [None]
  - DIARRHOEA [None]
  - NAUSEA [None]
  - SEPSIS [None]
  - VOMITING [None]
  - WHITE BLOOD CELL COUNT INCREASED [None]
